FAERS Safety Report 25678724 (Version 1)
Quarter: 2025Q3

REPORT INFORMATION
  Report Type: Spontaneous
  Country: US (occurrence: US)
  Receive Date: 20250814
  Receipt Date: 20250814
  Transmission Date: 20251021
  Serious: Yes (Life-Threatening, Hospitalization, Other)
  Sender: APOTEX
  Company Number: US-APOTEX-2025AP011493

PATIENT
  Age: 35 Year

DRUGS (3)
  1. RISPERIDONE [Suspect]
     Active Substance: RISPERIDONE
     Indication: Antipsychotic therapy
     Route: 048
  2. ETHYLENE GLYCOL [Suspect]
     Active Substance: ETHYLENE GLYCOL
     Indication: Product used for unknown indication
     Route: 048
  3. ALCOHOL [Suspect]
     Active Substance: ALCOHOL
     Indication: Product used for unknown indication
     Route: 048

REACTIONS (13)
  - Intentional overdose [Recovering/Resolving]
  - Toxicity to various agents [Recovering/Resolving]
  - Metabolic acidosis [Recovering/Resolving]
  - Kussmaul respiration [Recovering/Resolving]
  - Hypovolaemia [Recovering/Resolving]
  - Arrhythmia [Recovering/Resolving]
  - Torsade de pointes [Recovering/Resolving]
  - Loss of consciousness [Recovering/Resolving]
  - Hypotension [Recovering/Resolving]
  - Hyperventilation [Recovering/Resolving]
  - Electrocardiogram QT prolonged [Recovering/Resolving]
  - Hyperglycaemia [Recovering/Resolving]
  - Sinus tachycardia [Recovering/Resolving]
